FAERS Safety Report 17750446 (Version 1)
Quarter: 2020Q2

REPORT INFORMATION
  Report Type: Spontaneous
  Country: GB (occurrence: GB)
  Receive Date: 20200506
  Receipt Date: 20200506
  Transmission Date: 20200714
  Serious: Yes (Other)
  Sender: FDA-Public Use
  Company Number: NVSC2020GB120894

PATIENT
  Sex: Male

DRUGS (3)
  1. METHOTREXATE SODIUM. [Suspect]
     Active Substance: METHOTREXATE SODIUM
     Indication: RHEUMATOID ARTHRITIS
     Dosage: 5 DF, WEEKLY (STARTED IN EARLY 1990S OR 2000^S (5 DOSAGE FORM,1 IN 1 WK)
     Route: 065
     Dates: start: 2018
  2. METHOTREXATE SODIUM. [Suspect]
     Active Substance: METHOTREXATE SODIUM
     Indication: PSORIASIS
     Dosage: 5 DF, WEEKLY (STARTED IN EARLY 1990S OR 2000^S (5 DOSAGE FORM,1 IN 1 WK)
     Route: 065
  3. FOLIC ACID. [Concomitant]
     Active Substance: FOLIC ACID
     Indication: PROPHYLAXIS
     Dosage: 5 ML, UNK
     Route: 065

REACTIONS (1)
  - Cerebrovascular accident [Unknown]
